FAERS Safety Report 4629396-2 (Version None)
Quarter: 2005Q2

REPORT INFORMATION
  Report Type: 
  Country: None (occurrence: None)
  Receive Date: 20050405
  Receipt Date: 20050329
  Transmission Date: 20051028
  Serious: Yes (Death)
  Sender: FDA-Public Use
  Company Number: 2005CG00629

PATIENT
  Age: 77 Year
  Sex: Male

DRUGS (2)
  1. DIPRIVAN [Suspect]
     Indication: SEDATIVE THERAPY
     Dates: start: 20030423, end: 20030423
  2. ORGARAN [Concomitant]

REACTIONS (4)
  - CARDIAC ARREST [None]
  - HYPOXIA [None]
  - MYOCARDIAL INFARCTION [None]
  - VENTRICULAR FIBRILLATION [None]
